FAERS Safety Report 4320072-2 (Version None)
Quarter: 2004Q1

REPORT INFORMATION
  Report Type: 
  Country: None (occurrence: None)
  Receive Date: 20040315
  Receipt Date: 20040204
  Transmission Date: 20041129
  Serious: No
  Sender: FDA-Public Use
  Company Number: 2004197560US

PATIENT
  Age: 77 Year
  Sex: Female

DRUGS (1)
  1. BEXTRA [Suspect]
     Indication: ARTHRALGIA
     Dosage: 10 MG
     Dates: start: 20040201, end: 20040202

REACTIONS (4)
  - ABDOMINAL PAIN [None]
  - AMNESIA [None]
  - DIARRHOEA [None]
  - VOMITING [None]
